FAERS Safety Report 14444898 (Version 1)
Quarter: 2018Q1

REPORT INFORMATION
  Report Type: Spontaneous
  Country: US (occurrence: US)
  Receive Date: 20180126
  Receipt Date: 20180126
  Transmission Date: 20180509
  Serious: Yes (Hospitalization, Other)
  Sender: FDA-Public Use
  Company Number: US-WEST-WARD PHARMACEUTICALS CORP.-US-H14001-18-00498

PATIENT
  Age: 38 Year
  Sex: Female

DRUGS (1)
  1. HEPARIN [Suspect]
     Active Substance: HEPARIN SODIUM
     Indication: DEEP VEIN THROMBOSIS
     Dosage: CONTINUOUS UNFRACTIONATED HEPARIN ()
     Route: 065

REACTIONS (2)
  - Haemorrhage [Recovering/Resolving]
  - Dermatitis bullous [Recovering/Resolving]
